FAERS Safety Report 6162103-3 (Version None)
Quarter: 2009Q2

REPORT INFORMATION
  Report Type: 
  Country: None (occurrence: None)
  Receive Date: 20090417
  Receipt Date: 20090410
  Transmission Date: 20091009
  Serious: Yes (Life-Threatening)
  Sender: FDA-Public Use
  Company Number: 2009JP001335

PATIENT
  Age: 67 Year
  Sex: Male
  Weight: 40.9 kg

DRUGS (7)
  1. FUNGUARD (MICAFUNGIN) INJECTION [Suspect]
     Indication: ASPERGILLOSIS
     Dosage: 150 MG, UID/QD, IV DRIP
     Route: 041
     Dates: start: 20090305, end: 20090309
  2. TARGOCID [Suspect]
     Indication: STAPHYLOCOCCAL INFECTION
     Dosage: 300 MG, UID/QD, IV DRIP
     Route: 042
     Dates: start: 20090305, end: 20090309
  3. DALACIN-S (CLINDAMYCIN) INJECTION [Suspect]
     Indication: PNEUMONIA ASPIRATION
     Dosage: 600 MG, BID, IV NOS
     Route: 042
     Dates: start: 20090305, end: 20090309
  4. UNASYN S (AMPICILLIN SODIUM , SULBACTAM SODIUM) FORMULATION UNKNOWN [Suspect]
  5. BOSMIN (EPINEPHRINE) [Concomitant]
  6. ANITBIOTICS [Concomitant]
  7. ANTI-MRSA [Concomitant]

REACTIONS (1)
  - THROMBOCYTOPENIA [None]
